FAERS Safety Report 13940316 (Version 1)
Quarter: 2017Q3

REPORT INFORMATION
  Report Type: Spontaneous
  Country: FR (occurrence: FR)
  Receive Date: 20170906
  Receipt Date: 20170906
  Transmission Date: 20171127
  Serious: Yes (Hospitalization)
  Sender: FDA-Public Use
  Company Number: FR-SEPTODONT-201704226

PATIENT
  Age: 34 Year
  Sex: Female

DRUGS (4)
  1. MACROGOL 40000 [Concomitant]
  2. SCANDONEST PLAIN [Suspect]
     Active Substance: MEPIVACAINE HYDROCHLORIDE
     Indication: LOCAL ANAESTHESIA
     Dosage: INFERIOR ALVEOLAR NERVE BLOCK
     Route: 004
     Dates: start: 200810
  3. PHLOROGLUCINOL [Concomitant]
     Active Substance: PHLOROGLUCINOL
  4. TRIMETHYLPHLOROGLUCINOL [Concomitant]
     Active Substance: 1,3,5-TRIMETHOXYBENZENE

REACTIONS (5)
  - Facial asymmetry [Recovering/Resolving]
  - Facial paralysis [Recovering/Resolving]
  - Exposure during pregnancy [Unknown]
  - Eyelid ptosis [Recovering/Resolving]
  - Oral discomfort [Recovering/Resolving]

NARRATIVE: CASE EVENT DATE: 200810
